FAERS Safety Report 6578958-4 (Version None)
Quarter: 2010Q1

REPORT INFORMATION
  Report Type: 
  Country: None (occurrence: None)
  Receive Date: 20100212
  Receipt Date: 20100209
  Transmission Date: 20100710
  Serious: Yes (Life-Threatening, Disabling, Other)
  Sender: FDA-Public Use
  Company Number: US-BAYER-201013648NA

PATIENT
  Sex: Female

DRUGS (2)
  1. YAZ [Suspect]
     Indication: DRUG USE FOR UNKNOWN INDICATION
     Route: 048
     Dates: start: 20060101, end: 20080201
  2. YAZ [Suspect]
     Route: 048
     Dates: start: 20080901, end: 20081201

REACTIONS (5)
  - ABASIA [None]
  - NEPHRITIC SYNDROME [None]
  - ORGAN FAILURE [None]
  - PARALYSIS [None]
  - RENAL FAILURE [None]
